FAERS Safety Report 5692603-1 (Version None)
Quarter: 2008Q2

REPORT INFORMATION
  Report Type: 
  Country: None (occurrence: None)
  Receive Date: 20080402
  Receipt Date: 20080327
  Transmission Date: 20081010
  Serious: Yes (Hospitalization)
  Sender: FDA-Public Use
  Company Number: US-BOEHRINGER INGELHEIM GMBH, GERMANY-2008-BP-01456BP

PATIENT
  Sex: Male

DRUGS (3)
  1. VIRAMUNE [Suspect]
     Indication: HIV INFECTION
     Route: 048
     Dates: start: 20070907, end: 20071004
  2. TRUVADA [Concomitant]
     Dates: start: 20070907
  3. FMP/SINX [Concomitant]
     Dates: start: 20070830

REACTIONS (3)
  - PYREXIA [None]
  - STEVENS-JOHNSON SYNDROME [None]
  - TRANSAMINASES INCREASED [None]
